FAERS Safety Report 7424271-2 (Version None)
Quarter: 2011Q2

REPORT INFORMATION
  Report Type: 
  Country: None (occurrence: None)
  Receive Date: 20110419
  Receipt Date: 20110413
  Transmission Date: 20111010
  Serious: Yes (Other)
  Sender: FDA-Public Use
  Company Number: GB-ABBOTT-11P-167-0719028-00

PATIENT
  Sex: Male

DRUGS (1)
  1. HUMIRA [Suspect]
     Indication: PRODUCT USED FOR UNKNOWN INDICATION
     Dates: start: 20100501, end: 20110313

REACTIONS (4)
  - PHLEBITIS [None]
  - MUSCULAR WEAKNESS [None]
  - CHEST PAIN [None]
  - THROAT TIGHTNESS [None]
